FAERS Safety Report 7287722-2 (Version None)
Quarter: 2011Q1

REPORT INFORMATION
  Report Type: 
  Country: None (occurrence: None)
  Receive Date: 20110208
  Receipt Date: 20110208
  Transmission Date: 20110831
  Serious: Yes (Hospitalization)
  Sender: FDA-Public Use
  Company Number: None

PATIENT
  Age: 82 Year
  Sex: Male

DRUGS (2)
  1. MULTAQ [Suspect]
     Indication: ATRIAL FIBRILLATION
  2. PRADAXA [Suspect]
     Dates: start: 20110116, end: 20110124

REACTIONS (17)
  - HAEMATOCRIT DECREASED [None]
  - UROGENITAL HAEMORRHAGE [None]
  - CARDIAC ARREST [None]
  - POST PROCEDURAL HAEMORRHAGE [None]
  - RENAL FAILURE ACUTE [None]
  - URINARY RETENTION [None]
  - RECTAL HAEMORRHAGE [None]
  - PROTHROMBIN TIME PROLONGED [None]
  - TRACHEITIS [None]
  - DRUG INTERACTION [None]
  - BLOOD BICARBONATE DECREASED [None]
  - ATRIOVENTRICULAR BLOCK COMPLETE [None]
  - RESPIRATORY FAILURE [None]
  - BLOOD POTASSIUM INCREASED [None]
  - ACTIVATED PARTIAL THROMBOPLASTIN TIME PROLONGED [None]
  - BRONCHITIS [None]
  - INCORRECT DOSE ADMINISTERED [None]
